FAERS Safety Report 7739797-1 (Version None)
Quarter: 2011Q3

REPORT INFORMATION
  Report Type: 
  Country: None (occurrence: None)
  Receive Date: 20110909
  Receipt Date: 20110829
  Transmission Date: 20111222
  Serious: Yes (Other)
  Sender: FDA-Public Use
  Company Number: US-BAYER-2011-021221

PATIENT
  Age: 26 Year
  Sex: Female
  Weight: 65.76 kg

DRUGS (14)
  1. YASMIN [Suspect]
     Indication: CONTRACEPTION
     Dosage: UNK
     Dates: start: 20050801, end: 20090801
  2. SEROQUEL [Concomitant]
     Indication: BIPOLAR DISORDER
  3. LAMICTAL [Concomitant]
     Indication: BIPOLAR DISORDER
  4. BUPROPION HCL [Concomitant]
     Dosage: 100 MG, UNK
     Route: 048
     Dates: start: 20061129, end: 20090901
  5. ALPRAZOLAM [Concomitant]
     Dosage: 0.5 MG, UNK
     Route: 048
  6. SERTRALINE HYDROCHLORIDE [Concomitant]
     Dosage: 50 MG, UNK
     Route: 048
  7. DROSPIRENONE AND ETHINYL ESTRADIOL [Suspect]
     Indication: CONTRACEPTION
     Dosage: UNK
     Dates: start: 20050801, end: 20090801
  8. OMEPRAZOLE [Concomitant]
     Dosage: 20 MG, UNK
     Dates: start: 20090818, end: 20091001
  9. YAZ [Suspect]
     Indication: CONTRACEPTION
     Dosage: UNK
     Dates: start: 20050801, end: 20090801
  10. SEROQUEL [Concomitant]
     Indication: PANIC ATTACK
     Dosage: 300 MG, UNK
     Route: 048
  11. PORTIA-28 [Concomitant]
     Dosage: UNK
     Route: 048
     Dates: start: 20091016, end: 20091201
  12. LAMICTAL [Concomitant]
     Indication: PANIC ATTACK
     Dosage: 400 MG, UNK
     Route: 048
  13. LEXAPRO [Concomitant]
     Indication: BIPOLAR DISORDER
  14. LEXAPRO [Concomitant]
     Indication: PANIC ATTACK
     Dosage: 20 MG, UNK
     Route: 048
     Dates: start: 20091113

REACTIONS (5)
  - INJURY [None]
  - CHOLELITHIASIS [None]
  - CHOLECYSTITIS CHRONIC [None]
  - GALLBLADDER DISORDER [None]
  - PAIN [None]
